FAERS Safety Report 16596451 (Version 15)
Quarter: 2020Q2

REPORT INFORMATION
  Report Type: Spontaneous
  Country: CA (occurrence: CA)
  Receive Date: 20190719
  Receipt Date: 20200622
  Transmission Date: 20200713
  Serious: Yes (Other)
  Sender: FDA-Public Use
  Company Number: CA-ROCHE-2355382

PATIENT
  Age: 45 Year
  Sex: Female

DRUGS (11)
  1. XOLAIR [Suspect]
     Active Substance: OMALIZUMAB
     Route: 058
     Dates: start: 20190828
  2. XOLAIR [Suspect]
     Active Substance: OMALIZUMAB
     Route: 058
     Dates: start: 20190927
  3. XOLAIR [Suspect]
     Active Substance: OMALIZUMAB
     Route: 058
     Dates: start: 20200117
  4. REACTINE [CETIRIZINE HYDROCHLORIDE] [Concomitant]
     Active Substance: CETIRIZINE HYDROCHLORIDE
     Indication: PRODUCT USED FOR UNKNOWN INDICATION
     Dosage: 1 DF, BID
     Route: 048
     Dates: start: 201812
  5. EFFEXOR [Concomitant]
     Active Substance: VENLAFAXINE HYDROCHLORIDE
     Indication: PRODUCT USED FOR UNKNOWN INDICATION
     Dosage: 1 DF, QD
     Route: 048
     Dates: start: 1999
  6. APRESOLINE HYDROCHLORIDE [Concomitant]
     Active Substance: HYDRALAZINE HYDROCHLORIDE
     Indication: PRODUCT USED FOR UNKNOWN INDICATION
     Dosage: 1 DF, QD
     Route: 048
     Dates: start: 1999
  7. SPIRIVA [Concomitant]
     Active Substance: TIOTROPIUM BROMIDE MONOHYDRATE
     Indication: PRODUCT USED FOR UNKNOWN INDICATION
     Dosage: 2 DF, PRN
     Route: 055
     Dates: start: 201804
  8. XOLAIR [Suspect]
     Active Substance: OMALIZUMAB
     Indication: CHRONIC SPONTANEOUS URTICARIA
     Route: 058
     Dates: start: 20190628
  9. XOLAIR [Suspect]
     Active Substance: OMALIZUMAB
     Route: 058
  10. BENADRYL [Concomitant]
     Active Substance: DIPHENHYDRAMINE HYDROCHLORIDE
     Indication: PRODUCT USED FOR UNKNOWN INDICATION
     Dosage: 1 DF, QID
     Route: 048
     Dates: start: 201808
  11. TRAZODONE [Concomitant]
     Active Substance: TRAZODONE HYDROCHLORIDE
     Indication: PRODUCT USED FOR UNKNOWN INDICATION
     Dosage: 1 DF, QD
     Route: 048
     Dates: start: 1999

REACTIONS (43)
  - Musculoskeletal pain [Unknown]
  - Pain [Unknown]
  - Nasopharyngitis [Recovering/Resolving]
  - Oral pain [Unknown]
  - Influenza like illness [Not Recovered/Not Resolved]
  - Toothache [Unknown]
  - Chest discomfort [Unknown]
  - Head discomfort [Unknown]
  - Pruritus [Unknown]
  - Mouth ulceration [Unknown]
  - Malaise [Not Recovered/Not Resolved]
  - Sputum discoloured [Unknown]
  - Hypoaesthesia [Unknown]
  - Sinusitis [Unknown]
  - Type 2 diabetes mellitus [Unknown]
  - Productive cough [Unknown]
  - Feeling abnormal [Unknown]
  - Ageusia [Unknown]
  - Dry mouth [Unknown]
  - Angioedema [Recovering/Resolving]
  - Aphthous ulcer [Unknown]
  - Skin lesion [Unknown]
  - Autoimmune disorder [Unknown]
  - Conjunctivitis [Unknown]
  - Fungal infection [Unknown]
  - Sinus disorder [Unknown]
  - Sinus pain [Unknown]
  - Swollen tongue [Unknown]
  - Lower respiratory tract congestion [Unknown]
  - Neck pain [Unknown]
  - Cough [Unknown]
  - Urticaria [Not Recovered/Not Resolved]
  - Peripheral swelling [Not Recovered/Not Resolved]
  - Weight decreased [Unknown]
  - Burning sensation [Unknown]
  - Behcet^s syndrome [Unknown]
  - Upper respiratory tract congestion [Not Recovered/Not Resolved]
  - Dysphonia [Unknown]
  - Fatigue [Not Recovered/Not Resolved]
  - Oropharyngeal pain [Not Recovered/Not Resolved]
  - Pharyngitis [Unknown]
  - Glossodynia [Unknown]
  - Paraesthesia [Unknown]

NARRATIVE: CASE EVENT DATE: 20190706
